FAERS Safety Report 7291217-X (Version None)
Quarter: 2011Q1

REPORT INFORMATION
  Report Type: 
  Country: None (occurrence: None)
  Receive Date: 20110214
  Receipt Date: 20110208
  Transmission Date: 20110831
  Serious: Yes (Other)
  Sender: FDA-Public Use
  Company Number: IT-SANOFI-AVENTIS-2011SA007923

PATIENT
  Age: 62 Year
  Sex: Male

DRUGS (6)
  1. VASCOMAN [Concomitant]
     Route: 048
  2. XATRAL [Suspect]
     Route: 048
     Dates: start: 20101108, end: 20101126
  3. CLONIDINE HYDROCHLORIDE [Concomitant]
     Route: 062
  4. MULTI-VITAMINS [Concomitant]
     Route: 048
     Dates: start: 20101108, end: 20101121
  5. ROFERON-A [Suspect]
     Dosage: DOSE:3 UNIT(S)
     Route: 058
     Dates: start: 20091201, end: 20101207
  6. MIRTAZAPINE [Concomitant]
     Route: 048
     Dates: start: 20101001, end: 20101127

REACTIONS (5)
  - DYSPNOEA [None]
  - FEELING ABNORMAL [None]
  - HEADACHE [None]
  - SYNCOPE [None]
  - ASTHENIA [None]
